FAERS Safety Report 13036971 (Version 1)
Quarter: 2016Q4

REPORT INFORMATION
  Report Type: Spontaneous
  Country: US (occurrence: US)
  Receive Date: 20161216
  Receipt Date: 20161216
  Transmission Date: 20170207
  Serious: Yes (Hospitalization)
  Sender: FDA-Public Use
  Company Number: US-TEVA-721143USA

PATIENT
  Sex: Female

DRUGS (1)
  1. PROVIGIL [Suspect]
     Active Substance: MODAFINIL
     Indication: FIBROMYALGIA
     Dosage: 1/4 TABLET

REACTIONS (2)
  - Drug hypersensitivity [Unknown]
  - Gastritis [Unknown]

NARRATIVE: CASE EVENT DATE: 2005
